FAERS Safety Report 22102614 (Version 1)
Quarter: 2023Q1

REPORT INFORMATION
  Report Type: Spontaneous
  Country: CN (occurrence: CN)
  Receive Date: 20230316
  Receipt Date: 20230316
  Transmission Date: 20230417
  Serious: Yes (Life-Threatening, Hospitalization)
  Sender: FDA-Public Use
  Company Number: CN-BAYER-2023A034593

PATIENT
  Age: 73 Year
  Sex: Female
  Weight: 60 kg

DRUGS (2)
  1. ULTRAVIST [Suspect]
     Active Substance: IOPROMIDE
     Indication: Arteriogram carotid
     Dosage: 76.89 G, ONCE
     Route: 042
     Dates: start: 20230313, end: 20230313
  2. RIVAROXABAN [Concomitant]
     Active Substance: RIVAROXABAN
     Indication: Anticoagulant therapy
     Dosage: 15 MG, QD
     Route: 048
     Dates: start: 20230308, end: 20230314

REACTIONS (7)
  - Anaphylactic shock [Recovering/Resolving]
  - Lip oedema [Recovering/Resolving]
  - Erythema [Recovering/Resolving]
  - Skin swelling [Recovering/Resolving]
  - Indifference [Recovered/Resolved]
  - Muscular weakness [None]
  - Rash erythematous [Recovered/Resolved]

NARRATIVE: CASE EVENT DATE: 20230313
